FAERS Safety Report 17692786 (Version 1)
Quarter: 2020Q2

REPORT INFORMATION
  Report Type: Spontaneous
  Country: US (occurrence: US)
  Receive Date: 20200422
  Receipt Date: 20200422
  Transmission Date: 20200714
  Serious: No
  Sender: FDA-Public Use
  Company Number: US-ANTARES PHARMA, INC.-2020-SPO-TX-0092

PATIENT
  Age: 63 Year
  Sex: Male

DRUGS (1)
  1. XYOSTED [Suspect]
     Active Substance: TESTOSTERONE ENANTHATE
     Indication: HYPOGONADISM
     Dosage: 100 MG/0.5ML, QWK
     Route: 058
     Dates: start: 201912

REACTIONS (4)
  - Sensitive skin [Not Recovered/Not Resolved]
  - Skin discomfort [Not Recovered/Not Resolved]
  - Pruritus [Not Recovered/Not Resolved]
  - Burning sensation [Not Recovered/Not Resolved]
